FAERS Safety Report 11916712 (Version 1)
Quarter: 2016Q1

REPORT INFORMATION
  Report Type: Spontaneous
  Country: US (occurrence: None)
  Receive Date: 20160113
  Receipt Date: 20160113
  Transmission Date: 20160526
  Serious: Yes (Hospitalization)
  Sender: FDA-Public Use
  Company Number: None

PATIENT
  Age: 26 Year
  Sex: Female
  Weight: 67.13 kg

DRUGS (6)
  1. BACTRIM DS [Suspect]
     Active Substance: SULFAMETHOXAZOLE\TRIMETHOPRIM
     Indication: URINARY TRACT INFECTION
     Route: 048
  2. TYLENOL [Concomitant]
     Active Substance: ACETAMINOPHEN
  3. MAALOX ANTACID [Concomitant]
     Active Substance: ALUMINUM HYDROXIDE\DIMETHICONE\MAGNESIUM HYDROXIDE
  4. PRILOSEC OTC [Concomitant]
     Active Substance: OMEPRAZOLE MAGNESIUM
  5. LOESTRIN FE 1/20 [Concomitant]
     Active Substance: ETHINYL ESTRADIOL\NORETHINDRONE ACETATE
  6. PEPTO-BISMOL [Concomitant]
     Active Substance: BISMUTH SUBSALICYLATE\CALCIUM CARBONATE

REACTIONS (15)
  - Chest pain [None]
  - Nausea [None]
  - Asthenia [None]
  - Chills [None]
  - Decreased appetite [None]
  - Flatulence [None]
  - Myalgia [None]
  - Migraine [None]
  - Pollakiuria [None]
  - Abdominal pain [None]
  - Musculoskeletal stiffness [None]
  - Abdominal pain upper [None]
  - Fatigue [None]
  - Dyspnoea [None]
  - Abdominal distension [None]

NARRATIVE: CASE EVENT DATE: 20160109
